FAERS Safety Report 8964663 (Version 1)
Quarter: 2012Q4

REPORT INFORMATION
  Report Type: 
  Country: CH (occurrence: CH)
  Receive Date: 20121214
  Receipt Date: 20121214
  Transmission Date: 20130627
  Serious: Yes (Other)
  Sender: FDA-Public Use
  Company Number: CH-ASTRAZENECA-2012SE92244

PATIENT
  Age: 47 Year
  Sex: Female

DRUGS (6)
  1. SEROQUEL XR [Suspect]
     Route: 048
  2. SEROQUEL XR [Suspect]
     Dosage: 850 mg daily, it was a progressive increasing in dosage
     Route: 048
     Dates: start: 201203
  3. ABILIFY [Concomitant]
     Route: 048
  4. NOZINAN [Concomitant]
     Route: 048
  5. TRANXILIUM [Concomitant]
     Route: 048
  6. ROHYPNOL [Concomitant]
     Route: 048

REACTIONS (1)
  - Alopecia [Unknown]
